FAERS Safety Report 8474753-X (Version None)
Quarter: 2012Q2

REPORT INFORMATION
  Report Type: 
  Country: None (occurrence: None)
  Receive Date: 20120622
  Receipt Date: 20120605
  Transmission Date: 20120825
  Serious: Yes (Other)
  Sender: FDA-Public Use
  Company Number: RU-1192368

PATIENT
  Age: 58 Year
  Sex: Male

DRUGS (2)
  1. TIMOLOL OPHTHALMIC SOLUTION (TIMOLOL) [Suspect]
     Indication: OPEN ANGLE GLAUCOMA
     Dosage: (TWICE A DAY OPHTHALMIC)
     Route: 047
     Dates: end: 20120315
  2. TRAVATAN [Suspect]
     Indication: OPEN ANGLE GLAUCOMA
     Dosage: (ONCE A DAY OPHTHALMIC)
     Route: 047
     Dates: start: 20061017, end: 20120315

REACTIONS (3)
  - NEURITIS [None]
  - VISUAL ACUITY REDUCED [None]
  - CYSTOID MACULAR OEDEMA [None]
